FAERS Safety Report 4825578-5 (Version None)
Quarter: 2005Q4

REPORT INFORMATION
  Report Type: 
  Country: None (occurrence: None)
  Receive Date: 20051111
  Receipt Date: 20050919
  Transmission Date: 20060501
  Serious: No
  Sender: FDA-Public Use
  Company Number: US-GLAXOSMITHKLINE-A0574823A

PATIENT
  Age: 70 Year
  Sex: Male

DRUGS (4)
  1. AVODART [Suspect]
     Indication: BENIGN PROSTATIC HYPERPLASIA
     Dosage: .5MG PER DAY
     Route: 048
     Dates: start: 20050913, end: 20050917
  2. ZOCOR [Concomitant]
  3. INSULIN [Concomitant]
  4. PLAVIX [Concomitant]

REACTIONS (3)
  - DIFFICULTY IN WALKING [None]
  - TESTICULAR PAIN [None]
  - TESTICULAR SWELLING [None]
